FAERS Safety Report 24656730 (Version 1)
Quarter: 2024Q4

REPORT INFORMATION
  Report Type: Report from Study
  Country: US (occurrence: US)
  Receive Date: 20241125
  Receipt Date: 20241125
  Transmission Date: 20250114
  Serious: No
  Sender: ROCHE
  Company Number: US-ROCHE-10000138859

PATIENT
  Age: 59 Year
  Sex: Female

DRUGS (15)
  1. OCREVUS [Suspect]
     Active Substance: OCRELIZUMAB
     Indication: Multiple sclerosis
     Route: 042
     Dates: start: 20181030
  2. BISACODYL [Concomitant]
     Active Substance: BISACODYL
  3. BISCOLAX [Concomitant]
     Active Substance: BISACODYL
  4. CLOTRIMAZOLE [Concomitant]
     Active Substance: CLOTRIMAZOLE
  5. CYANOCOBALAMIN [Concomitant]
     Active Substance: CYANOCOBALAMIN
  6. DIPHENHYDRAMINE [Concomitant]
     Active Substance: DIPHENHYDRAMINE
  7. FAMOTIDINE [Concomitant]
     Active Substance: FAMOTIDINE
  8. IBUPROFEN [Concomitant]
     Active Substance: IBUPROFEN
  9. GENTAMICIN [Concomitant]
     Active Substance: GENTAMICIN
  10. LOPERAMIDE [Concomitant]
     Active Substance: LOPERAMIDE
  11. LORATADINE [Concomitant]
     Active Substance: LORATADINE
  12. MECLIZINE [Concomitant]
     Active Substance: MECLIZINE HYDROCHLORIDE
  13. NALTREXONE [Concomitant]
     Active Substance: NALTREXONE
  14. OXYCODONE [Concomitant]
     Active Substance: OXYCODONE
  15. PREDNISONE [Concomitant]
     Active Substance: PREDNISONE

REACTIONS (5)
  - Candida infection [Recovered/Resolved]
  - Conjunctivitis [Recovered/Resolved]
  - Pain [Recovered/Resolved]
  - Vocal cord inflammation [Recovered/Resolved]
  - Aphonia [Recovered/Resolved]

NARRATIVE: CASE EVENT DATE: 20240501
